FAERS Safety Report 15650737 (Version 1)
Quarter: 2018Q4

REPORT INFORMATION
  Report Type: Spontaneous
  Country: US (occurrence: US)
  Receive Date: 20181123
  Receipt Date: 20181123
  Transmission Date: 20190205
  Serious: Yes (Hospitalization, Other)
  Sender: FDA-Public Use
  Company Number: US-AUROBINDO-AUR-APL-2018-055660

PATIENT
  Weight: 1.7 kg

DRUGS (1)
  1. ACETAMINOPHEN. [Suspect]
     Active Substance: ACETAMINOPHEN
     Indication: TOOTHACHE
     Dosage: PATIENT^S MOTHER TAKEN A FULL BOTTLE (BOTTLE SIZE UNKNOWN) OF ACETAMINOPHEN ()
     Route: 064

REACTIONS (5)
  - Coagulopathy [Recovering/Resolving]
  - Drug level increased [Recovering/Resolving]
  - Platelet count decreased [Recovering/Resolving]
  - Hepatotoxicity [Recovering/Resolving]
  - Foetal exposure during pregnancy [Recovering/Resolving]
